FAERS Safety Report 5153103-0 (Version None)
Quarter: 2006Q4

REPORT INFORMATION
  Report Type: 
  Country: None (occurrence: None)
  Receive Date: 20061117
  Receipt Date: 20061026
  Transmission Date: 20070319
  Serious: Yes (Life-Threatening, Hospitalization, Other)
  Sender: FDA-Public Use
  Company Number: US-GLAXOSMITHKLINE-A0625075A

PATIENT
  Age: 36 Year
  Sex: Female
  Weight: 54.5 kg

DRUGS (4)
  1. ADVAIR DISKUS 100/50 [Suspect]
     Indication: ASTHMA
     Dosage: 2PUFF TWICE PER DAY
     Route: 055
     Dates: start: 20030409, end: 20041201
  2. SINGULAIR [Concomitant]
     Dosage: 10MG PER DAY
     Route: 048
     Dates: start: 20040409
  3. COMBIVENT [Concomitant]
     Dosage: 2PUFF SIX TIMES PER DAY
     Route: 055
     Dates: start: 20040301
  4. XOLAIR [Concomitant]
     Dosage: 375MG EVERY TWO WEEKS
     Dates: start: 20050316

REACTIONS (4)
  - ACUTE RESPIRATORY FAILURE [None]
  - ASTHMA [None]
  - THERAPY NON-RESPONDER [None]
  - UPPER RESPIRATORY TRACT INFECTION [None]
